FAERS Safety Report 22014120 (Version 1)
Quarter: 2023Q1

REPORT INFORMATION
  Report Type: Other
  Country: KR (occurrence: KR)
  Receive Date: 20230221
  Receipt Date: 20230221
  Transmission Date: 20230417
  Serious: Yes (Hospitalization)
  Sender: FDA-Public Use
  Company Number: KR-002147023-NVSC2023KR033169

PATIENT
  Sex: Male

DRUGS (9)
  1. LUCENTIS [Suspect]
     Active Substance: RANIBIZUMAB
     Indication: Diabetic retinal oedema
     Dosage: 1 DOSAGE FORM
     Route: 065
     Dates: start: 20191127, end: 20191127
  2. LUCENTIS [Suspect]
     Active Substance: RANIBIZUMAB
     Dosage: 1 DOSAGE FORM
     Route: 065
     Dates: start: 20200219, end: 20200219
  3. LUCENTIS [Suspect]
     Active Substance: RANIBIZUMAB
     Dosage: 1 DOSAGE FORM
     Route: 065
     Dates: start: 20200520, end: 20200520
  4. LUCENTIS [Suspect]
     Active Substance: RANIBIZUMAB
     Dosage: 1 DOSAGE FORM
     Route: 065
     Dates: start: 20200909, end: 20200909
  5. LUCENTIS [Suspect]
     Active Substance: RANIBIZUMAB
     Dosage: 1 DOSAGE FORM
     Route: 065
     Dates: start: 20201216, end: 20201216
  6. LUCENTIS [Suspect]
     Active Substance: RANIBIZUMAB
     Dosage: 1 DOSAGE FORM
     Route: 065
     Dates: start: 20210317, end: 20210317
  7. LUCENTIS [Suspect]
     Active Substance: RANIBIZUMAB
     Dosage: 1 DOSAGE FORM
     Route: 065
     Dates: start: 20210721, end: 20210721
  8. LUCENTIS [Suspect]
     Active Substance: RANIBIZUMAB
     Dosage: 1 DOSAGE FORM
     Route: 065
     Dates: start: 20220526, end: 20220526
  9. LUCENTIS [Suspect]
     Active Substance: RANIBIZUMAB
     Dosage: 1 DOSAGE FORM
     Route: 065
     Dates: start: 20221125, end: 20221125

REACTIONS (1)
  - Glaucoma [Recovering/Resolving]
